FAERS Safety Report 21600769 (Version 1)
Quarter: 2022Q4

REPORT INFORMATION
  Report Type: Report from Study
  Country: US (occurrence: US)
  Receive Date: 20221116
  Receipt Date: 20221116
  Transmission Date: 20230113
  Serious: Yes (Hospitalization)
  Sender: FDA-Public Use
  Company Number: US-ALNYLAM PHARMACEUTICALS, INC.-ALN-2022-004078

PATIENT

DRUGS (2)
  1. GIVLAARI [Suspect]
     Active Substance: GIVOSIRAN SODIUM
     Indication: Porphyria acute
     Dosage: WEIGHT BASE DOSING, MONTHLY
     Route: 058
     Dates: start: 20200708, end: 20200708
  2. GIVLAARI [Suspect]
     Active Substance: GIVOSIRAN SODIUM
     Dosage: WEIGHT BASE DOSING, MONTHLY
     Route: 058
     Dates: start: 20221103

REACTIONS (1)
  - Porphyria acute [Recovering/Resolving]
